FAERS Safety Report 4341943-7 (Version None)
Quarter: 2004Q2

REPORT INFORMATION
  Report Type: 
  Country: None (occurrence: None)
  Receive Date: 20040415
  Receipt Date: 20040326
  Transmission Date: 20050107
  Serious: Yes (Life-Threatening, Hospitalization, Other)
  Sender: FDA-Public Use
  Company Number: EWC040338654

PATIENT
  Age: 67 Year
  Sex: Female

DRUGS (3)
  1. PERGOLIDE MESYLATE [Suspect]
     Indication: PARKINSON'S DISEASE
     Dosage: 1.5 MG/3 DAY
     Dates: start: 19970901, end: 20010117
  2. SINEMET [Concomitant]
  3. SYMMETREL [Concomitant]

REACTIONS (8)
  - AORTIC VALVE INCOMPETENCE [None]
  - ATRIAL FIBRILLATION [None]
  - ATRIOVENTRICULAR BLOCK [None]
  - CARDIAC FAILURE [None]
  - GENERALISED OEDEMA [None]
  - MITRAL VALVE DISEASE [None]
  - POST PROCEDURAL COMPLICATION [None]
  - TRICUSPID VALVE INCOMPETENCE [None]
